FAERS Safety Report 16239544 (Version 1)
Quarter: 2019Q2

REPORT INFORMATION
  Report Type: Report from Study
  Country: AR (occurrence: AR)
  Receive Date: 20190425
  Receipt Date: 20190425
  Transmission Date: 20190711
  Serious: Yes (Hospitalization)
  Sender: FDA-Public Use
  Company Number: AR-ASTELLAS-2011002265

PATIENT
  Sex: Female

DRUGS (1)
  1. ERLOTINIB [Suspect]
     Active Substance: ERLOTINIB
     Indication: LUNG NEOPLASM MALIGNANT
     Dosage: UNK UNK, UNKNOWN FREQ (DRUG STOP DATE: MAY 2011)
     Route: 048
     Dates: start: 20110419, end: 201105

REACTIONS (7)
  - Blood disorder [Unknown]
  - Red blood cell count decreased [Unknown]
  - Enterocolitis haemorrhagic [Unknown]
  - Anaemia [Not Recovered/Not Resolved]
  - Diarrhoea haemorrhagic [Not Recovered/Not Resolved]
  - Faeces discoloured [Unknown]
  - Ill-defined disorder [Unknown]
